FAERS Safety Report 24671189 (Version 1)
Quarter: 2024Q4

REPORT INFORMATION
  Report Type: Spontaneous
  Country: CO (occurrence: CO)
  Receive Date: 20241127
  Receipt Date: 20241127
  Transmission Date: 20250115
  Serious: Yes (Life-Threatening, Other)
  Sender: BAYER HEALTHCARE PHARMACEUTICALS INC.
  Company Number: CO-BAYER-2024A168693

PATIENT
  Age: 73 Year
  Sex: Male
  Weight: 75 kg

DRUGS (1)
  1. ULTRAVIST [Suspect]
     Active Substance: IOPROMIDE
     Indication: Computerised tomogram
     Dosage: 75 ML

REACTIONS (7)
  - Urticaria [Recovered/Resolved]
  - Hypotension [Recovered/Resolved]
  - Rash [None]
  - Face oedema [None]
  - Pruritus [None]
  - Tremor [None]
  - Dizziness [None]

NARRATIVE: CASE EVENT DATE: 20240923
